FAERS Safety Report 8105734-3 (Version None)
Quarter: 2012Q1

REPORT INFORMATION
  Report Type: 
  Country: None (occurrence: None)
  Receive Date: 20120201
  Receipt Date: 20120123
  Transmission Date: 20120608
  Serious: Yes (Other)
  Sender: FDA-Public Use
  Company Number: US-ASTRAZENECA-2011SE72425

PATIENT
  Age: 40 Year
  Sex: Male
  Weight: 119 kg

DRUGS (13)
  1. CALCITRIOL [Concomitant]
     Dosage: DAILY
     Route: 048
  2. LISINOPRIL [Concomitant]
     Route: 048
  3. SYNTHROID [Concomitant]
     Route: 048
  4. CALCIUM 1000 D [Concomitant]
     Dosage: DAILY
     Route: 048
  5. BENADRYL [Concomitant]
     Dosage: PRN
     Route: 048
  6. ELEMENTAL CALCIUM [Concomitant]
  7. LISINOPRIL [Concomitant]
     Dosage: DAILY
     Route: 048
  8. SYNTHROID [Concomitant]
     Dosage: DAILY
     Route: 048
  9. VANDETANIB [Suspect]
     Route: 048
  10. CALCITRIOL [Concomitant]
     Route: 048
  11. VANDETANIB [Suspect]
     Indication: THYROID CANCER METASTATIC
     Route: 048
     Dates: start: 20111001, end: 20111107
  12. HYDROCODONE BITARTRATE [Concomitant]
     Dosage: AS NEEDED
  13. VANDETANIB [Suspect]
     Route: 048
     Dates: start: 20111115

REACTIONS (6)
  - HYPOCALCAEMIA [None]
  - SKIN DISORDER [None]
  - METASTASES TO BONE [None]
  - ELECTROCARDIOGRAM QT PROLONGED [None]
  - ACNE [None]
  - METASTASES TO LIVER [None]
